FAERS Safety Report 8180314-2 (Version None)
Quarter: 2012Q1

REPORT INFORMATION
  Report Type: 
  Country: None (occurrence: None)
  Receive Date: 20120302
  Receipt Date: 20120223
  Transmission Date: 20120608
  Serious: Yes (Death, Other)
  Sender: FDA-Public Use
  Company Number: BR-PFIZER INC-2012051047

PATIENT
  Sex: Male

DRUGS (3)
  1. CLOFAZIMINE [Concomitant]
     Indication: LEPROSY
  2. DAPSONE [Concomitant]
     Indication: LEPROSY
  3. RIFAMPICIN [Suspect]
     Indication: LEPROSY
     Dosage: 600 MG, MONTHLY

REACTIONS (1)
  - DISSEMINATED INTRAVASCULAR COAGULATION [None]
